FAERS Safety Report 5235673-7 (Version None)
Quarter: 2007Q1

REPORT INFORMATION
  Report Type: 
  Country: None (occurrence: None)
  Receive Date: 20070212
  Receipt Date: 20070202
  Transmission Date: 20070707
  Serious: Yes (Other)
  Sender: FDA-Public Use
  Company Number: LB-GLAXOSMITHKLINE-B0457859A

PATIENT
  Age: 26 Year
  Sex: Female

DRUGS (2)
  1. LAMICTAL [Suspect]
     Indication: EPILEPSY
     Route: 048
     Dates: start: 20020101, end: 20070124
  2. DEPAKENE [Concomitant]
     Dosage: 500MG TWICE PER DAY
     Dates: start: 20020101

REACTIONS (4)
  - BLINDNESS [None]
  - HYPOTONIA [None]
  - RESTLESSNESS [None]
  - VISION BLURRED [None]
